FAERS Safety Report 11588492 (Version 1)
Quarter: 2015Q4

REPORT INFORMATION
  Report Type: Spontaneous
  Country: US (occurrence: US)
  Receive Date: 20151002
  Receipt Date: 20151002
  Transmission Date: 20160304
  Serious: No
  Sender: FDA-Public Use
  Company Number: US-HORIZON-DUE-0081-2015

PATIENT
  Age: 53 Year
  Sex: Female

DRUGS (2)
  1. DUEXIS [Suspect]
     Active Substance: FAMOTIDINE\IBUPROFEN
     Indication: ARTHRITIS
     Dosage: 1 DF TWICE DAILY
     Route: 048
     Dates: start: 20150731
  2. XANAX [Concomitant]
     Active Substance: ALPRAZOLAM

REACTIONS (2)
  - Blood urine [Recovered/Resolved]
  - Off label use [Unknown]

NARRATIVE: CASE EVENT DATE: 20150904
